FAERS Safety Report 20502140 (Version 1)
Quarter: 2022Q1

REPORT INFORMATION
  Report Type: Spontaneous
  Country: US (occurrence: US)
  Receive Date: 20220222
  Receipt Date: 20220222
  Transmission Date: 20220423
  Serious: No
  Sender: FDA-Public Use
  Company Number: US-NOVOPROD-793060

PATIENT
  Age: 55 Year
  Sex: Female

DRUGS (2)
  1. SAXENDA [Suspect]
     Active Substance: LIRAGLUTIDE
     Dosage: INCREASED DOSE
     Route: 058
     Dates: start: 2020, end: 20201202
  2. SAXENDA [Suspect]
     Active Substance: LIRAGLUTIDE
     Indication: Weight control
     Dosage: UNK
     Route: 058
     Dates: start: 20200824, end: 2020

REACTIONS (1)
  - Thyroid cyst [Recovered/Resolved]
